FAERS Safety Report 11049326 (Version 1)
Quarter: 2015Q2

REPORT INFORMATION
  Report Type: Spontaneous
  Country: AR (occurrence: AR)
  Receive Date: 20150420
  Receipt Date: 20150420
  Transmission Date: 20150821
  Serious: Yes (Other)
  Sender: FDA-Public Use
  Company Number: AR-MYLANLABS-2015M1013058

PATIENT

DRUGS (3)
  1. CIFLODEX [Suspect]
     Active Substance: CIPROFLOXACIN\DEXAMETHASONE
     Indication: STREPTOCOCCAL INFECTION
     Route: 061
  2. CIPROFLOXACIN. [Suspect]
     Active Substance: CIPROFLOXACIN
     Indication: STREPTOCOCCAL INFECTION
     Route: 048
  3. CIFLODEX [Suspect]
     Active Substance: CIPROFLOXACIN\DEXAMETHASONE
     Route: 048

REACTIONS (3)
  - Alternaria infection [Recovered/Resolved with Sequelae]
  - Keratitis fungal [Recovered/Resolved with Sequelae]
  - Hypopyon [Recovered/Resolved]
